FAERS Safety Report 11757272 (Version 2)
Quarter: 2015Q4

REPORT INFORMATION
  Report Type: Spontaneous
  Country: US (occurrence: US)
  Receive Date: 20151120
  Receipt Date: 20151124
  Transmission Date: 20160304
  Serious: No
  Sender: FDA-Public Use
  Company Number: US-BAYER-2015-452652

PATIENT
  Age: 53 Year
  Sex: Male

DRUGS (1)
  1. HELIXATE FS [Suspect]
     Active Substance: ANTIHEMOPHILIC FACTOR, HUMAN RECOMBINANT
     Indication: FACTOR VIII DEFICIENCY
     Dosage: 3017 U, BIW AND Q 12 TO 24 HOURS PRN EARLY
     Route: 042

REACTIONS (3)
  - Joint swelling [None]
  - Extra dose administered [None]
  - Pain in extremity [Unknown]

NARRATIVE: CASE EVENT DATE: 20151017
